FAERS Safety Report 9372171 (Version 2)
Quarter: 2013Q3

REPORT INFORMATION
  Report Type: Report from Study
  Country: DE (occurrence: EG)
  Receive Date: 20130627
  Receipt Date: 20130904
  Transmission Date: 20140515
  Serious: Yes (Hospitalization)
  Sender: FDA-Public Use
  Company Number: DE-ABBOTT-13P-062-1108923-00

PATIENT
  Age: 47 Year
  Sex: Female

DRUGS (1)
  1. HUMIRA [Suspect]
     Indication: CROHN^S DISEASE
     Route: 058
     Dates: start: 20120604, end: 20130603

REACTIONS (9)
  - Cardiovascular disorder [Not Recovered/Not Resolved]
  - Spleen disorder [Not Recovered/Not Resolved]
  - Respiratory rate increased [Not Recovered/Not Resolved]
  - Liver function test abnormal [Not Recovered/Not Resolved]
  - Vomiting [Not Recovered/Not Resolved]
  - Pneumonia [Not Recovered/Not Resolved]
  - Herpes virus infection [Recovering/Resolving]
  - Hepatomegaly [Recovering/Resolving]
  - Splenomegaly [Recovering/Resolving]
